FAERS Safety Report 5192579-X (Version None)
Quarter: 2006Q4

REPORT INFORMATION
  Report Type: 
  Country: None (occurrence: None)
  Receive Date: 20061220
  Receipt Date: 20061208
  Transmission Date: 20070319
  Serious: Yes (Other)
  Sender: FDA-Public Use
  Company Number: TRP_0896_2006

PATIENT
  Age: 55 Year
  Sex: Male

DRUGS (2)
  1. RIBASPHERE [Suspect]
     Indication: DRUG USE FOR UNKNOWN INDICATION
     Dosage: DF PO
     Route: 048
     Dates: start: 20060113
  2. PEGASYS [Suspect]
     Indication: DRUG USE FOR UNKNOWN INDICATION
     Dosage: DF SC
     Route: 058
     Dates: start: 20060113

REACTIONS (5)
  - PAIN [None]
  - PAIN IN EXTREMITY [None]
  - RED BLOOD CELL COUNT DECREASED [None]
  - SCROTAL DISORDER [None]
  - THYROID DISORDER [None]
